FAERS Safety Report 23816195 (Version 1)
Quarter: 2024Q2

REPORT INFORMATION
  Report Type: Spontaneous
  Country: US (occurrence: US)
  Receive Date: 20240503
  Receipt Date: 20240503
  Transmission Date: 20240716
  Serious: Yes (Disabling, Other)
  Sender: FDA-Public Use
  Company Number: US-ELI_LILLY_AND_COMPANY-US202404017658

PATIENT
  Age: 55 Year
  Sex: Female

DRUGS (1)
  1. HUMALOG [Suspect]
     Active Substance: INSULIN LISPRO
     Indication: Diabetes mellitus
     Dosage: UNK UNK, UNKNOWN
     Route: 065

REACTIONS (6)
  - Diabetic retinopathy [Unknown]
  - Back disorder [Unknown]
  - Road traffic accident [Unknown]
  - Diabetic neuropathy [Unknown]
  - Diabetic nephropathy [Unknown]
  - Gastrointestinal disorder [Unknown]
